FAERS Safety Report 17742056 (Version 2)
Quarter: 2020Q2

REPORT INFORMATION
  Report Type: Spontaneous
  Country: US (occurrence: US)
  Receive Date: 20200504
  Receipt Date: 20200511
  Transmission Date: 20200714
  Serious: Yes (Hospitalization, Other)
  Sender: FDA-Public Use
  Company Number: US-GLENMARK PHARMACEUTICALS-2020GMK047599

PATIENT
  Age: 37 Year
  Sex: Male

DRUGS (1)
  1. TRIAMCINOLONE ACETONIDE. [Suspect]
     Active Substance: TRIAMCINOLONE ACETONIDE
     Indication: PRODUCT USED FOR UNKNOWN INDICATION
     Dosage: INTRAOPERATIVE INJECTION OF TRIAMCINOLONE ACETONIDE (TA) INTO THE SEPTAL MUCOSA WAS PERFORMED
     Route: 065

REACTIONS (9)
  - Retinal artery embolism [Recovered/Resolved]
  - Retinal artery occlusion [Recovered/Resolved]
  - Visual field defect [Not Recovered/Not Resolved]
  - Blindness unilateral [Unknown]
  - Retinal degeneration [Unknown]
  - Visual impairment [Not Recovered/Not Resolved]
  - Choroidal infarction [Unknown]
  - Subretinal hyperreflective exudation [Recovered/Resolved]
  - Maculopathy [Recovered/Resolved with Sequelae]
